FAERS Safety Report 10460064 (Version 1)
Quarter: 2014Q3

REPORT INFORMATION
  Report Type: Spontaneous
  Country: US (occurrence: US)
  Receive Date: 20140917
  Receipt Date: 20140917
  Transmission Date: 20150326
  Serious: Yes (Life-Threatening, Hospitalization, Other)
  Sender: FDA-Public Use
  Company Number: US-B.I. PHARMACEUTICALS,INC./RIDGEFIELD-2014-BI-43607BP

PATIENT
  Age: 65 Year
  Sex: Female

DRUGS (2)
  1. ASPIRIN. [Suspect]
     Active Substance: ASPIRIN
     Indication: PRODUCT USED FOR UNKNOWN INDICATION
     Route: 065
  2. PRADAXA [Suspect]
     Active Substance: DABIGATRAN ETEXILATE MESYLATE
     Indication: ATRIAL FIBRILLATION
     Dosage: 300 MG
     Route: 048
     Dates: start: 201210, end: 20121112

REACTIONS (9)
  - Cerebral haemorrhage [Unknown]
  - Fall [Unknown]
  - Injury [Unknown]
  - Generalised tonic-clonic seizure [Recovered/Resolved]
  - Skin abrasion [Unknown]
  - Subdural haematoma [Recovered/Resolved]
  - Coagulopathy [Not Recovered/Not Resolved]
  - Acute respiratory failure [Recovered/Resolved]
  - Thrombocytopenia [Not Recovered/Not Resolved]

NARRATIVE: CASE EVENT DATE: 201211
